FAERS Safety Report 8844099 (Version 2)
Quarter: 2013Q2

REPORT INFORMATION
  Report Type: Spontaneous
  Country: US (occurrence: US)
  Receive Date: 20121016
  Receipt Date: 20130429
  Transmission Date: 20140414
  Serious: No
  Sender: FDA-Public Use
  Company Number: PHEH2012US019988

PATIENT
  Sex: Female

DRUGS (4)
  1. TASIGNA [Suspect]
     Route: 048
     Dates: start: 201203, end: 20120610
  2. GLEEVEC [Suspect]
     Dosage: UNK
     Dates: start: 201110, end: 201202
  3. VYTORIN [Concomitant]
  4. METHIMAZOLE [Concomitant]

REACTIONS (2)
  - Liver function test abnormal [Unknown]
  - Blood bilirubin increased [Unknown]
